FAERS Safety Report 23460414 (Version 1)
Quarter: 2024Q1

REPORT INFORMATION
  Report Type: Spontaneous
  Country: US (occurrence: US)
  Receive Date: 20240131
  Receipt Date: 20240131
  Transmission Date: 20240410
  Serious: Yes (Other)
  Sender: FDA-Public Use
  Company Number: US-STRIDES ARCOLAB LIMITED-2023SP017498

PATIENT
  Age: 32 Year
  Sex: Female

DRUGS (3)
  1. CABERGOLINE [Suspect]
     Active Substance: CABERGOLINE
     Indication: Hyperprolactinaemia
     Dosage: UNK, LOW DOSE
     Route: 048
  2. CABERGOLINE [Suspect]
     Active Substance: CABERGOLINE
     Dosage: UNK,LOW DOSE
     Route: 067
  3. BROMOCRIPTINE [Suspect]
     Active Substance: BROMOCRIPTINE
     Indication: Hyperprolactinaemia
     Dosage: UNK, LOW DOSE
     Route: 048

REACTIONS (1)
  - Treatment failure [Unknown]
